FAERS Safety Report 14742815 (Version 2)
Quarter: 2018Q3

REPORT INFORMATION
  Report Type: Report from Study
  Country: None (occurrence: ES)
  Receive Date: 20180410
  Receipt Date: 20180706
  Transmission Date: 20181010
  Serious: Yes (Life-Threatening, Hospitalization)
  Sender: FDA-Public Use
  Company Number: ES-BAUSCH-BL-2018-009102

PATIENT
  Age: 67 Year
  Sex: Male

DRUGS (4)
  1. VENLAFAXINA [Suspect]
     Active Substance: VENLAFAXINE HYDROCHLORIDE
     Indication: DEPRESSION
     Route: 048
     Dates: start: 201106
  2. ALDOCUMAR [Interacting]
     Active Substance: WARFARIN SODIUM
     Indication: CEREBRAL VENOUS THROMBOSIS
     Dosage: 40 COMPRESSED
     Route: 048
     Dates: start: 201508, end: 20160703
  3. NEURONTIN [Concomitant]
     Active Substance: GABAPENTIN
     Indication: PRODUCT USED FOR UNKNOWN INDICATION
     Dosage: 30 CAPSULES, 1200 MILLIGRAM IN ONE DAY
     Route: 048
     Dates: start: 2010, end: 20160703
  4. CETIRIZINA [Interacting]
     Active Substance: CETIRIZINE HYDROCHLORIDE
     Indication: DEPRESSION
     Route: 048

REACTIONS (1)
  - Subarachnoid haemorrhage [Recovered/Resolved]

NARRATIVE: CASE EVENT DATE: 20160702
